FAERS Safety Report 7378303-0 (Version None)
Quarter: 2011Q1

REPORT INFORMATION
  Report Type: 
  Country: None (occurrence: None)
  Receive Date: 20110328
  Receipt Date: 20110315
  Transmission Date: 20110831
  Serious: Yes (Life-Threatening)
  Sender: FDA-Public Use
  Company Number: IT-JNJFOC-20110306980

PATIENT
  Age: 45 Year
  Sex: Female

DRUGS (3)
  1. REMICADE [Suspect]
     Indication: COLITIS ULCERATIVE
     Route: 042
  2. AZATHIOPRINE [Concomitant]
     Route: 065
  3. DELTACORTENE [Concomitant]
     Route: 065

REACTIONS (3)
  - BRAIN ABSCESS [None]
  - GRAND MAL CONVULSION [None]
  - RESPIRATORY FAILURE [None]
